FAERS Safety Report 14934777 (Version 2)
Quarter: 2018Q3

REPORT INFORMATION
  Report Type: Report from Study
  Country: None (occurrence: ZA)
  Receive Date: 20180524
  Receipt Date: 20180803
  Transmission Date: 20181010
  Serious: Yes (Death, Hospitalization)
  Sender: FDA-Public Use
  Company Number: ZA-ABBVIE-18P-143-2236801-00

PATIENT
  Age: 78 Year
  Sex: Female
  Weight: 77 kg

DRUGS (25)
  1. VENETOCLAX. [Suspect]
     Active Substance: VENETOCLAX
     Route: 048
     Dates: start: 20180111, end: 20180111
  2. VENETOCLAX. [Suspect]
     Active Substance: VENETOCLAX
     Route: 048
     Dates: start: 20180112, end: 20180125
  3. VENETOCLAX. [Suspect]
     Active Substance: VENETOCLAX
     Route: 048
     Dates: start: 20180126, end: 20180205
  4. CYTARABINE. [Suspect]
     Active Substance: CYTARABINE
     Indication: ACUTE MYELOID LEUKAEMIA
     Dosage: DAYS 1?10
     Route: 058
     Dates: start: 20180107, end: 20180116
  5. CYKLOKAPRON [Concomitant]
     Active Substance: TRANEXAMIC ACID
     Indication: HAEMORRHAGE PROPHYLAXIS
     Route: 048
     Dates: start: 20170110
  6. ACYCLOVIR. [Concomitant]
     Active Substance: ACYCLOVIR
     Indication: ANTIVIRAL PROPHYLAXIS
     Route: 048
     Dates: start: 20180106, end: 20180205
  7. ALLOPURINOL. [Concomitant]
     Active Substance: ALLOPURINOL
     Indication: TUMOUR LYSIS SYNDROME
  8. ROWANS MOUTH WASH [Concomitant]
     Indication: PROPHYLAXIS
     Route: 002
     Dates: start: 20180103
  9. NORMAL SALINE SOLUTION (0.9% SODIUM CHLORIDE) [Concomitant]
     Indication: TUMOUR LYSIS SYNDROME
  10. PERINDOPRIL [Concomitant]
     Active Substance: PERINDOPRIL
     Indication: HYPERTENSION
     Route: 048
     Dates: start: 20180112, end: 20180210
  11. THROMBOGEL [Concomitant]
     Indication: INJECTION SITE INFLAMMATION
     Dosage: 1 APPLICATION
     Route: 003
     Dates: start: 20180116, end: 20180210
  12. VENETOCLAX. [Suspect]
     Active Substance: VENETOCLAX
     Route: 048
     Dates: start: 20180110, end: 20180110
  13. ERAXIS [Concomitant]
     Active Substance: ANIDULAFUNGIN
     Indication: ANTIBIOTIC PROPHYLAXIS
     Route: 042
     Dates: start: 20180106
  14. KYTRIL [Concomitant]
     Active Substance: GRANISETRON HYDROCHLORIDE
     Indication: PROPHYLAXIS OF NAUSEA AND VOMITING
     Route: 042
     Dates: start: 20180103
  15. PERFALGAN [Concomitant]
     Active Substance: ACETAMINOPHEN
     Indication: PLATELET TRANSFUSION
  16. MERONEM [Concomitant]
     Active Substance: MEROPENEM
     Indication: ANTIBIOTIC PROPHYLAXIS
     Route: 042
     Dates: start: 20180108
  17. VENETOCLAX. [Suspect]
     Active Substance: VENETOCLAX
     Indication: ACUTE MYELOID LEUKAEMIA
     Route: 048
     Dates: start: 20180107, end: 20180107
  18. PERFALGAN [Concomitant]
     Active Substance: ACETAMINOPHEN
     Indication: ALLERGIC TRANSFUSION REACTION
     Route: 042
     Dates: start: 20180114, end: 20180204
  19. PURBAC [Concomitant]
     Active Substance: SULFAMETHOXAZOLE\TRIMETHOPRIM
     Indication: ANTIFUNGAL PROPHYLAXIS
     Route: 048
     Dates: start: 20180106
  20. ALLOPURINOL. [Concomitant]
     Active Substance: ALLOPURINOL
     Indication: PROPHYLAXIS
     Route: 048
     Dates: start: 20180103, end: 20180205
  21. XANOR [Concomitant]
     Active Substance: ALPRAZOLAM
     Indication: ANXIETY
     Route: 048
     Dates: start: 20180103
  22. MAXOLON [Concomitant]
     Active Substance: METOCLOPRAMIDE HYDROCHLORIDE
     Indication: PROPHYLAXIS OF NAUSEA AND VOMITING
     Route: 048
     Dates: start: 20180103
  23. CIPRALEX [Concomitant]
     Active Substance: ESCITALOPRAM OXALATE
     Indication: DEPRESSION
     Route: 048
     Dates: start: 20180113
  24. NORMAL SALINE SOLUTION (0.9% SODIUM CHLORIDE) [Concomitant]
     Indication: PROPHYLAXIS
     Dates: start: 20180103, end: 20180205
  25. PAROEX MOUTH WASH [Concomitant]
     Indication: PROPHYLAXIS
     Route: 002
     Dates: start: 20180103

REACTIONS (1)
  - Aspergillus infection [Fatal]

NARRATIVE: CASE EVENT DATE: 20180124
